FAERS Safety Report 6208373-4 (Version None)
Quarter: 2009Q2

REPORT INFORMATION
  Report Type: 
  Country: None (occurrence: None)
  Receive Date: 20090529
  Receipt Date: 20090520
  Transmission Date: 20091009
  Serious: Yes (Other)
  Sender: FDA-Public Use
  Company Number: US-JNJFOC-20090307179

PATIENT
  Sex: Female
  Weight: 66 kg

DRUGS (48)
  1. GOLIMUMAB [Suspect]
     Route: 058
  2. GOLIMUMAB [Suspect]
     Route: 058
  3. GOLIMUMAB [Suspect]
     Route: 058
  4. GOLIMUMAB [Suspect]
     Route: 058
  5. GOLIMUMAB [Suspect]
     Route: 058
  6. GOLIMUMAB [Suspect]
     Route: 058
  7. GOLIMUMAB [Suspect]
     Route: 058
  8. GOLIMUMAB [Suspect]
     Route: 058
  9. GOLIMUMAB [Suspect]
     Route: 058
  10. GOLIMUMAB [Suspect]
     Route: 058
  11. GOLIMUMAB [Suspect]
     Route: 058
  12. GOLIMUMAB [Suspect]
     Route: 058
  13. GOLIMUMAB [Suspect]
     Route: 058
  14. GOLIMUMAB [Suspect]
     Route: 058
  15. GOLIMUMAB [Suspect]
     Route: 058
  16. GOLIMUMAB [Suspect]
     Route: 058
  17. GOLIMUMAB [Suspect]
     Route: 058
  18. GOLIMUMAB [Suspect]
     Route: 058
  19. GOLIMUMAB [Suspect]
     Route: 058
  20. GOLIMUMAB [Suspect]
     Route: 058
  21. GOLIMUMAB [Suspect]
     Route: 058
  22. GOLIMUMAB [Suspect]
     Route: 058
  23. GOLIMUMAB [Suspect]
     Route: 058
  24. GOLIMUMAB [Suspect]
     Indication: RHEUMATOID ARTHRITIS
     Route: 058
  25. PLACEBO [Suspect]
     Route: 058
  26. PLACEBO [Suspect]
     Route: 058
  27. PLACEBO [Suspect]
     Route: 058
  28. PLACEBO [Suspect]
     Indication: RHEUMATOID ARTHRITIS
     Route: 058
  29. ACYCLOVIR [Concomitant]
     Route: 048
  30. GLYBURIDE [Concomitant]
     Route: 048
  31. GLYBURIDE [Concomitant]
     Route: 048
  32. GLYBURIDE [Concomitant]
     Indication: DIABETES MELLITUS
     Route: 048
  33. METFORMIN HCL [Concomitant]
     Route: 048
  34. METFORMIN HCL [Concomitant]
     Route: 048
  35. METFORMIN HCL [Concomitant]
     Indication: DIABETES MELLITUS
     Route: 048
  36. ADVIL [Concomitant]
     Indication: HEADACHE
     Route: 048
  37. FOSAMAX [Concomitant]
     Route: 048
  38. ACETAMINOPHEN [Concomitant]
     Indication: RHEUMATOID ARTHRITIS
     Route: 048
  39. LEVOTHYROXINE SODIUM [Concomitant]
     Indication: HYPOTHYROIDISM
     Route: 048
  40. AVANDIA [Concomitant]
     Indication: DIABETES MELLITUS
     Route: 048
  41. LISINOPRIL [Concomitant]
     Route: 048
  42. ACTOS [Concomitant]
     Indication: DIABETES MELLITUS
     Route: 048
  43. REQUIP [Concomitant]
     Route: 048
  44. REQUIP [Concomitant]
     Indication: PARKINSON'S DISEASE
     Route: 048
  45. REQUIP XL [Concomitant]
     Indication: PARKINSON'S DISEASE
     Route: 048
  46. COLACE [Concomitant]
     Indication: CONSTIPATION
     Route: 048
  47. ESTRATEST [Concomitant]
     Indication: MENOPAUSE
     Route: 048
  48. PROMETRIUM [Concomitant]
     Indication: MENOPAUSE
     Route: 048

REACTIONS (1)
  - RECTAL CANCER [None]
